FAERS Safety Report 24326922 (Version 1)
Quarter: 2024Q3

REPORT INFORMATION
  Report Type: Spontaneous
  Country: FR (occurrence: FR)
  Receive Date: 20240917
  Receipt Date: 20240917
  Transmission Date: 20241016
  Serious: Yes (Hospitalization)
  Sender: CHEPLAPHARM
  Company Number: FR-CHEPLA-2024011719

PATIENT
  Age: 35 Year
  Sex: Female

DRUGS (2)
  1. OLANZAPINE PAMOATE [Suspect]
     Active Substance: OLANZAPINE PAMOATE
     Dates: start: 20240908
  2. OLANZAPINE PAMOATE [Suspect]
     Active Substance: OLANZAPINE PAMOATE
     Dosage: 2 WEEKS PREVIOUSLY

REACTIONS (7)
  - Altered state of consciousness [Recovering/Resolving]
  - Dyskinesia [Recovering/Resolving]
  - Asthenia [Recovering/Resolving]
  - Laryngospasm [Not Recovered/Not Resolved]
  - Hypertonia [Recovering/Resolving]
  - Muscle spasms [Not Recovered/Not Resolved]
  - Coma [Recovering/Resolving]

NARRATIVE: CASE EVENT DATE: 20240908
